FAERS Safety Report 18331776 (Version 1)
Quarter: 2020Q3

REPORT INFORMATION
  Report Type: Spontaneous
  Country: DE (occurrence: DE)
  Receive Date: 20200930
  Receipt Date: 20200930
  Transmission Date: 20201103
  Serious: Yes (Other)
  Sender: FDA-Public Use
  Company Number: NVSC2020DE264500

PATIENT
  Age: 23 Year
  Sex: Female

DRUGS (3)
  1. FLUCONAZOLE. [Suspect]
     Active Substance: FLUCONAZOLE
     Indication: MUCOCUTANEOUS CANDIDIASIS
     Dosage: 100 MG, QD
     Route: 048
     Dates: start: 1996
  2. ITRACONAZOLE. [Suspect]
     Active Substance: ITRACONAZOLE
     Indication: MUCOCUTANEOUS CANDIDIASIS
     Dosage: 100 MG, QD
     Route: 048
     Dates: start: 1995
  3. TERBINAFINE. [Suspect]
     Active Substance: TERBINAFINE
     Indication: MUCOCUTANEOUS CANDIDIASIS
     Dosage: 250 MG, QD
     Route: 048
     Dates: start: 199906

REACTIONS (3)
  - Product use in unapproved indication [Unknown]
  - Off label use [Unknown]
  - Drug ineffective [Unknown]

NARRATIVE: CASE EVENT DATE: 199906
